FAERS Safety Report 21915673 (Version 4)
Quarter: 2023Q1

REPORT INFORMATION
  Report Type: Report from Study
  Country: GB (occurrence: GB)
  Receive Date: 20230126
  Receipt Date: 20230224
  Transmission Date: 20230417
  Serious: Yes (Congenital Anomaly, Other)
  Sender: FDA-Public Use
  Company Number: GB-MYLANLABS-2023M1008613

PATIENT
  Sex: Male
  Weight: 1.44 kg

DRUGS (4)
  1. RITONAVIR [Suspect]
     Active Substance: RITONAVIR
     Indication: HIV infection
     Dosage: 100 MILLIGRAM, QD
     Route: 064
     Dates: start: 20110819
  2. EMTRICITABINE\TENOFOVIR DISOPROXIL [Suspect]
     Active Substance: EMTRICITABINE\TENOFOVIR DISOPROXIL
     Indication: HIV infection
     Dosage: 1 DOSAGE FORM, QD DAILY (1 TAB/CAPS)
     Route: 064
     Dates: start: 20191219
  3. REYATAZ [Suspect]
     Active Substance: ATAZANAVIR SULFATE
     Indication: Product used for unknown indication
     Dosage: 300 MILLIGRAM, QD
     Route: 064
     Dates: start: 20110819
  4. ATAZANAVIR [Suspect]
     Active Substance: ATAZANAVIR
     Indication: HIV infection
     Dosage: 300 MILLIGRAM, QD (DAILY)
     Route: 064
     Dates: start: 20110819

REACTIONS (14)
  - Intraventricular haemorrhage neonatal [Unknown]
  - Periventricular leukomalacia [Unknown]
  - Seizure [Unknown]
  - Neonatal respiratory distress syndrome [Unknown]
  - Hyperbilirubinaemia [Unknown]
  - Cytogenetic abnormality [Unknown]
  - Neonatal seizure [Unknown]
  - Foetal exposure during pregnancy [Recovered/Resolved]
  - Pulmonary haemorrhage neonatal [Unknown]
  - White matter lesion [Unknown]
  - Hyperbilirubinaemia neonatal [Unknown]
  - Premature baby [Unknown]
  - Chromosome analysis abnormal [Unknown]
  - Gastrooesophageal reflux disease [Unknown]

NARRATIVE: CASE EVENT DATE: 20191219
